FAERS Safety Report 14245299 (Version 1)
Quarter: 2017Q4

REPORT INFORMATION
  Report Type: Spontaneous
  Country: US (occurrence: US)
  Receive Date: 20171202
  Receipt Date: 20171202
  Transmission Date: 20180321
  Serious: No
  Sender: FDA-Public Use
  Company Number: US-ENDO PHARMACEUTICALS INC-2017-003009

PATIENT
  Age: 53 Year
  Sex: Male

DRUGS (7)
  1. XIAFLEX [Suspect]
     Active Substance: COLLAGENASE CLOSTRIDIUM HISTOLYTICUM
     Dosage: UNK UNK, SINGLE (SECOND INJECTION, SECOND CYCLE)
     Route: 026
  2. XIAFLEX [Suspect]
     Active Substance: COLLAGENASE CLOSTRIDIUM HISTOLYTICUM
     Indication: PEYRONIE^S DISEASE
     Dosage: UNK UNK, SINGLE (FIRST INJECTION OF FOURTH CYCLE)
     Dates: start: 20170517
  3. XIAFLEX [Suspect]
     Active Substance: COLLAGENASE CLOSTRIDIUM HISTOLYTICUM
     Dosage: UNK UNK, SINGLE (FIRST INJECTION, FIRST CYCLE)
     Route: 026
  4. XIAFLEX [Suspect]
     Active Substance: COLLAGENASE CLOSTRIDIUM HISTOLYTICUM
     Dosage: UNK UNK, SINGLE (FIRST INJECTION, THIRD CYCLE)
     Route: 026
  5. XIAFLEX [Suspect]
     Active Substance: COLLAGENASE CLOSTRIDIUM HISTOLYTICUM
     Dosage: UNK UNK, SINGLE  (SECOND INJECTION, FIRST CYCLE)
     Route: 026
  6. XIAFLEX [Suspect]
     Active Substance: COLLAGENASE CLOSTRIDIUM HISTOLYTICUM
     Dosage: UNK UNK, SINGLE  (FIRST INJECTION, SECOND CYCLE)
     Route: 026
  7. XIAFLEX [Suspect]
     Active Substance: COLLAGENASE CLOSTRIDIUM HISTOLYTICUM
     Dosage: UNK UNK, SINGLE  (SECOND INJECTION, THIRD CYCLE)
     Route: 026

REACTIONS (3)
  - Injection site nodule [Unknown]
  - Penile contusion [Unknown]
  - Penile swelling [Unknown]

NARRATIVE: CASE EVENT DATE: 20170518
